FAERS Safety Report 8297290-4 (Version None)
Quarter: 2012Q1

REPORT INFORMATION
  Report Type: 
  Country: None (occurrence: None)
  Receive Date: 20120322
  Receipt Date: 20120120
  Transmission Date: 20120608
  Serious: Yes (Hospitalization)
  Sender: FDA-Public Use
  Company Number: UTC-014842

PATIENT
  Age: 70 Year
  Sex: Female

DRUGS (4)
  1. REVATIO [Concomitant]
  2. TYVASO [Suspect]
     Indication: PULMONARY ARTERIAL HYPERTENSION
     Dosage: 216 MCG (54 MCG, 4 IN 1 D), INHALATION
     Route: 055
     Dates: start: 20101029
  3. DIURETICS (DIURETICS) [Concomitant]
  4. LETAIRIS [Concomitant]

REACTIONS (6)
  - DRY EYE [None]
  - GASTRIC DISORDER [None]
  - SPINAL CORD DISORDER [None]
  - SURGERY [None]
  - OCULAR HYPERAEMIA [None]
  - EYE PRURITUS [None]
